FAERS Safety Report 9817294 (Version 1)
Quarter: 2014Q1

REPORT INFORMATION
  Report Type: Spontaneous
  Country: US (occurrence: US)
  Receive Date: 20140115
  Receipt Date: 20140115
  Transmission Date: 20141002
  Serious: Yes (Hospitalization, Other)
  Sender: FDA-Public Use
  Company Number: US-JNJFOC-20140100329

PATIENT
  Sex: 0

DRUGS (2)
  1. FAMOTIDINE [Suspect]
     Route: 065
  2. FAMOTIDINE [Suspect]
     Indication: PROPHYLAXIS AGAINST GASTROINTESTINAL ULCER
     Route: 065

REACTIONS (3)
  - Gastrointestinal haemorrhage [Unknown]
  - Pneumonia [Unknown]
  - Clostridium difficile colitis [Unknown]
